FAERS Safety Report 19173266 (Version 2)
Quarter: 2021Q2

REPORT INFORMATION
  Report Type: Spontaneous
  Country: JP (occurrence: JP)
  Receive Date: 20210423
  Receipt Date: 20210429
  Transmission Date: 20210717
  Serious: Yes (Other)
  Sender: FDA-Public Use
  Company Number: JP-STRIDES ARCOLAB LIMITED-2021SP004649

PATIENT
  Age: 24 Year
  Sex: Female

DRUGS (11)
  1. PREDNISOLONE. [Suspect]
     Active Substance: PREDNISOLONE
     Dosage: UNK, LOW DOSE
     Route: 048
  2. CYCLOSPORINE. [Suspect]
     Active Substance: CYCLOSPORINE
     Indication: NEPHROTIC SYNDROME
     Dosage: UNK (MONOTHERAPY AFTER 22 YEARS)
     Route: 065
  3. RITUXIMAB. [Suspect]
     Active Substance: RITUXIMAB
     Indication: NEPHROTIC SYNDROME
     Dosage: UNK
     Route: 065
  4. MIZORIBINE [Concomitant]
     Active Substance: MIZORIBINE
     Indication: NEPHROTIC SYNDROME
  5. PREDNISOLONE. [Suspect]
     Active Substance: PREDNISOLONE
     Indication: NEPHROTIC SYNDROME
     Dosage: UNK, HIGH TO MIDDLE DOSES
     Route: 048
  6. PREDNISOLONE. [Suspect]
     Active Substance: PREDNISOLONE
     Dosage: UNK, (MAINTENANCE THERAPY)
     Route: 065
  7. PREDNISOLONE. [Suspect]
     Active Substance: PREDNISOLONE
     Indication: FOCAL SEGMENTAL GLOMERULOSCLEROSIS
     Dosage: 60 MILLIGRAM PER DAY
     Route: 048
  8. RITUXIMAB. [Suspect]
     Active Substance: RITUXIMAB
     Indication: FOCAL SEGMENTAL GLOMERULOSCLEROSIS
     Dosage: 375 MILLIGRAM/SQ. METER, ONCE A WEEK
     Route: 065
  9. RITUXIMAB. [Suspect]
     Active Substance: RITUXIMAB
     Dosage: UNK (MAINTENANCE THERAPY)
     Route: 065
  10. CYCLOSPORINE. [Suspect]
     Active Substance: CYCLOSPORINE
     Indication: FOCAL SEGMENTAL GLOMERULOSCLEROSIS
     Dosage: UNK
     Route: 065
  11. MIZORIBINE [Concomitant]
     Active Substance: MIZORIBINE
     Indication: FOCAL SEGMENTAL GLOMERULOSCLEROSIS
     Dosage: UNK
     Route: 065

REACTIONS (3)
  - Substance-induced psychotic disorder [Unknown]
  - Disease recurrence [Unknown]
  - Maternal exposure during pregnancy [Unknown]
